FAERS Safety Report 13530072 (Version 1)
Quarter: 2017Q2

REPORT INFORMATION
  Report Type: Spontaneous
  Country: US (occurrence: US)
  Receive Date: 20170509
  Receipt Date: 20170509
  Transmission Date: 20170830
  Serious: Yes (Death)
  Sender: FDA-Public Use
  Company Number: None

PATIENT
  Age: 57 Year
  Sex: Male

DRUGS (7)
  1. SUTENT [Suspect]
     Active Substance: SUNITINIB MALATE
     Indication: RENAL CANCER
     Dosage: 1 CAPSULE DAILY ORAL
     Route: 048
     Dates: start: 20170216
  2. DIAZEPAM. [Concomitant]
     Active Substance: DIAZEPAM
  3. HYDROZYZ HCL [Concomitant]
  4. ASPIRIN. [Concomitant]
     Active Substance: ASPIRIN
  5. LEVEMIR [Concomitant]
     Active Substance: INSULIN DETEMIR
  6. PROCHLORPER [Concomitant]
  7. OXYCODONE [Concomitant]
     Active Substance: OXYCODONE

REACTIONS (1)
  - Death [None]
